FAERS Safety Report 11213502 (Version 4)
Quarter: 2016Q4

REPORT INFORMATION
  Report Type: Spontaneous
  Country: US (occurrence: US)
  Receive Date: 20150623
  Receipt Date: 20161004
  Transmission Date: 20170206
  Serious: Yes (Other)
  Sender: FDA-Public Use
  Company Number: PHEH2015US011612

PATIENT
  Sex: Male

DRUGS (10)
  1. VITAMIN D [Concomitant]
     Active Substance: CHOLECALCIFEROL
     Indication: PRODUCT USED FOR UNKNOWN INDICATION
     Dosage: 50000/125 MG
     Route: 065
  2. CYMBALTA [Concomitant]
     Active Substance: DULOXETINE HYDROCHLORIDE
     Indication: DEPRESSION
     Dosage: 30 MG, UNK
     Route: 065
  3. ALLOPURINOL. [Concomitant]
     Active Substance: ALLOPURINOL
     Indication: PRODUCT USED FOR UNKNOWN INDICATION
     Dosage: UNK
     Route: 065
  4. LIPITOR [Concomitant]
     Active Substance: ATORVASTATIN CALCIUM
     Indication: PRODUCT USED FOR UNKNOWN INDICATION
     Dosage: 20 MG, UNK
     Route: 065
  5. LISINOPRIL. [Concomitant]
     Active Substance: LISINOPRIL
     Indication: PRODUCT USED FOR UNKNOWN INDICATION
     Dosage: UNK
     Route: 065
  6. TASIGNA [Suspect]
     Active Substance: NILOTINIB
     Dosage: 200 MG, BID  (1 CAPSULE OF 200 MG, TWICE DAILY)
     Route: 065
     Dates: start: 2014
  7. HCTZ [Concomitant]
     Active Substance: HYDROCHLOROTHIAZIDE
     Indication: PRODUCT USED FOR UNKNOWN INDICATION
     Dosage: 25 MG, UNK
     Route: 065
  8. TASIGNA [Suspect]
     Active Substance: NILOTINIB
     Dosage: 200 MG, QD
     Route: 065
  9. LATUDA [Concomitant]
     Active Substance: LURASIDONE HYDROCHLORIDE
     Indication: PRODUCT USED FOR UNKNOWN INDICATION
     Dosage: UNK
     Route: 065
  10. TASIGNA [Suspect]
     Active Substance: NILOTINIB
     Indication: LEUKAEMIA
     Dosage: 400 MG, BID (2 CAPSULE OF 200 MG, TWICE DAILY)
     Route: 065
     Dates: start: 201406

REACTIONS (12)
  - Mania [Unknown]
  - Asthenia [Unknown]
  - Tachyphrenia [Unknown]
  - Feeling abnormal [Unknown]
  - Disturbance in attention [Unknown]
  - Memory impairment [Unknown]
  - Emotional disorder [Unknown]
  - Bipolar I disorder [Unknown]
  - Depression [Unknown]
  - Fatigue [Unknown]
  - Hypersomnia [Unknown]
  - Insomnia [Unknown]
